FAERS Safety Report 6347322-5 (Version None)
Quarter: 2009Q3

REPORT INFORMATION
  Report Type: 
  Country: None (occurrence: None)
  Receive Date: 20090910
  Receipt Date: 20090902
  Transmission Date: 20100115
  Serious: Yes (Other)
  Sender: FDA-Public Use
  Company Number: PHEH2009US10247

PATIENT
  Sex: Female

DRUGS (3)
  1. RECLAST [Suspect]
     Dosage: UNK
     Dates: start: 20090715, end: 20090715
  2. CALCIUM WITH VITAMIN D [Concomitant]
     Dosage: UNK, UNK
     Route: 065
  3. ANTIBIOTICS [Concomitant]
     Dosage: UNK, UNKL
     Route: 065

REACTIONS (3)
  - ABSCESS [None]
  - SHOULDER ARTHROPLASTY [None]
  - TOOTHACHE [None]
